FAERS Safety Report 24742791 (Version 1)
Quarter: 2024Q4

REPORT INFORMATION
  Report Type: Spontaneous
  Country: ES (occurrence: ES)
  Receive Date: 20241217
  Receipt Date: 20241217
  Transmission Date: 20250115
  Serious: Yes (Hospitalization)
  Sender: BAYER HEALTHCARE PHARMACEUTICALS INC.
  Company Number: ES-BAYER-2024A171938

PATIENT
  Age: 87 Year
  Sex: Male

DRUGS (15)
  1. FINERENONE [Suspect]
     Active Substance: FINERENONE
     Indication: Diabetic nephropathy
     Dosage: UNK
     Dates: start: 20240522, end: 20241008
  2. OLMESARTAN [Concomitant]
     Active Substance: OLMESARTAN
  3. AMLODIPINE BESYLATE [Concomitant]
     Active Substance: AMLODIPINE BESYLATE
  4. EMPAGLIFLOZIN [Concomitant]
     Active Substance: EMPAGLIFLOZIN
  5. ATORVASTATIN [Concomitant]
     Active Substance: ATORVASTATIN
  6. EZETIMIBE [Concomitant]
     Active Substance: EZETIMIBE
  7. BISOPROLOL [Concomitant]
     Active Substance: BISOPROLOL
  8. SITAGLIPTIN [Concomitant]
     Active Substance: SITAGLIPTIN
  9. METFORMIN [Concomitant]
     Active Substance: METFORMIN HYDROCHLORIDE
  10. TAMSULOSIN [Concomitant]
     Active Substance: TAMSULOSIN
  11. OMEPRAZOLE [Concomitant]
     Active Substance: OMEPRAZOLE
  12. ERYTHROPOIETIN [Concomitant]
     Active Substance: ERYTHROPOIETIN
  13. CALCIFEDIOL [Concomitant]
     Active Substance: CALCIFEDIOL
  14. ASPIRIN [Concomitant]
     Active Substance: ASPIRIN
  15. PENTOXIFYLLINE [Concomitant]
     Active Substance: PENTOXIFYLLINE

REACTIONS (7)
  - Gastrointestinal haemorrhage [None]
  - Rectal haemorrhage [None]
  - Hypotension [None]
  - Dizziness [None]
  - Faeces discoloured [None]
  - Anaemia [Recovering/Resolving]
  - Haemoglobin abnormal [None]

NARRATIVE: CASE EVENT DATE: 20240101
